FAERS Safety Report 4577362-8 (Version None)
Quarter: 2005Q1

REPORT INFORMATION
  Report Type: 
  Country: None (occurrence: None)
  Receive Date: 20050210
  Receipt Date: 20050131
  Transmission Date: 20050727
  Serious: Yes (Hospitalization)
  Sender: FDA-Public Use
  Company Number: FR-GLAXOSMITHKLINE-B0369111A

PATIENT
  Age: 21 Year
  Sex: Male

DRUGS (3)
  1. DEROXAT [Suspect]
     Indication: ILL-DEFINED DISORDER
     Route: 048
     Dates: start: 20041115, end: 20041215
  2. IMOVANE [Suspect]
     Route: 048
     Dates: start: 20041115, end: 20041215
  3. ALCOHOL [Suspect]
     Route: 048
     Dates: start: 20041215, end: 20041215

REACTIONS (6)
  - ALCOHOL USE [None]
  - AMNESIA [None]
  - MENTAL DISORDER [None]
  - MULTIPLE DRUG OVERDOSE [None]
  - OVERDOSE [None]
  - SELF MUTILATION [None]
